FAERS Safety Report 7702963-5 (Version None)
Quarter: 2011Q3

REPORT INFORMATION
  Report Type: 
  Country: None (occurrence: None)
  Receive Date: 20110823
  Receipt Date: 20110818
  Transmission Date: 20111222
  Serious: No
  Sender: FDA-Public Use
  Company Number: PHEH2011US01103

PATIENT
  Sex: Female

DRUGS (6)
  1. INSULIN [Concomitant]
  2. TERBINAFINE HCL [Suspect]
     Indication: ONYCHOMYCOSIS
     Dosage: 250 MG, QD
     Route: 048
  3. TRAMADOL HCL [Concomitant]
  4. TOPAMAX [Concomitant]
  5. FENTANYL [Concomitant]
  6. LYRICA [Concomitant]

REACTIONS (3)
  - ORAL DISORDER [None]
  - PRODUCT TASTE ABNORMAL [None]
  - DYSGEUSIA [None]
